FAERS Safety Report 5137903-9 (Version None)
Quarter: 2006Q4

REPORT INFORMATION
  Report Type: 
  Country: None (occurrence: None)
  Receive Date: 20061030
  Receipt Date: 20060207
  Transmission Date: 20070319
  Serious: No
  Sender: FDA-Public Use
  Company Number: US-GLAXOSMITHKLINE-A0592667A

PATIENT
  Age: 65 Year
  Sex: Male
  Weight: 72.7 kg

DRUGS (1)
  1. ADVAIR HFA [Suspect]
     Indication: EXERCISE ADEQUATE
     Route: 055
     Dates: start: 20040101

REACTIONS (1)
  - POOR QUALITY DRUG ADMINISTERED [None]
